FAERS Safety Report 22890169 (Version 5)
Quarter: 2023Q4

REPORT INFORMATION
  Report Type: Spontaneous
  Country: CA (occurrence: CA)
  Receive Date: 20230831
  Receipt Date: 20231205
  Transmission Date: 20240109
  Serious: Yes (Other)
  Sender: FDA-Public Use
  Company Number: CA-PFIZER INC-PV202300141726

PATIENT
  Age: 44 Year
  Sex: Female
  Weight: 46 kg

DRUGS (3)
  1. RUXIENCE [Suspect]
     Active Substance: RITUXIMAB-PVVR
     Indication: Systemic lupus erythematosus
     Dosage: 375 MG/M2, (WEEKLY X 4)
     Route: 042
  2. RUXIENCE [Suspect]
     Active Substance: RITUXIMAB-PVVR
     Indication: Immune thrombocytopenia
     Dosage: 530 MG, (WEEKLY X 4)
     Route: 042
  3. RUXIENCE [Suspect]
     Active Substance: RITUXIMAB-PVVR
     Dosage: 525 MG, WEEKLY (375 MG/M2) Q7DAYS, QUANTITY 4X  (525 MG)
     Route: 042
     Dates: start: 20231116

REACTIONS (2)
  - Osteonecrosis [Unknown]
  - Off label use [Unknown]
